FAERS Safety Report 14912534 (Version 1)
Quarter: 2018Q2

REPORT INFORMATION
  Report Type: Spontaneous
  Country: US (occurrence: US)
  Receive Date: 20180501
  Receipt Date: 20180501
  Transmission Date: 20180711
  Serious: Yes (Hospitalization, Disabling)
  Sender: FDA-Public Use
  Company Number: None

PATIENT
  Age: 22 Year
  Sex: Female
  Weight: 109.8 kg

DRUGS (4)
  1. CELEXA [Concomitant]
     Active Substance: CITALOPRAM HYDROBROMIDE
  2. RISPERIDONE. [Concomitant]
     Active Substance: RISPERIDONE
  3. LAMICTAL [Concomitant]
     Active Substance: LAMOTRIGINE
  4. LAMOTRIGINE. [Suspect]
     Active Substance: LAMOTRIGINE
     Indication: BIPOLAR DISORDER
     Dosage: ?          QUANTITY:1 TABLET(S);?
     Route: 048
     Dates: start: 20110915, end: 20180501

REACTIONS (7)
  - Autoimmune disorder [None]
  - Malaise [None]
  - Pain [None]
  - Pyrexia [None]
  - Connective tissue disorder [None]
  - Rash [None]
  - Swelling [None]

NARRATIVE: CASE EVENT DATE: 20161014
